FAERS Safety Report 5184694-1 (Version None)
Quarter: 2006Q4

REPORT INFORMATION
  Report Type: 
  Country: None (occurrence: None)
  Receive Date: 20061220
  Receipt Date: 20060410
  Transmission Date: 20070319
  Serious: No
  Sender: FDA-Public Use
  Company Number: US-GLAXOSMITHKLINE-A0601547A

PATIENT
  Sex: Female

DRUGS (1)
  1. NICODERM CQ [Suspect]

REACTIONS (5)
  - DEPRESSED MOOD [None]
  - INCREASED APPETITE [None]
  - INTENTIONAL DRUG MISUSE [None]
  - NICOTINE DEPENDENCE [None]
  - WEIGHT INCREASED [None]
